FAERS Safety Report 5704718-X (Version None)
Quarter: 2008Q2

REPORT INFORMATION
  Report Type: 
  Country: None (occurrence: None)
  Receive Date: 20080414
  Receipt Date: 20080402
  Transmission Date: 20081010
  Serious: Yes (Hospitalization, Other)
  Sender: FDA-Public Use
  Company Number: NO-PFIZER INC-2008023942

PATIENT
  Sex: Female

DRUGS (5)
  1. ZOLOFT [Suspect]
     Indication: DEPRESSION
     Route: 048
     Dates: start: 19980319, end: 19980601
  2. TRIPHASIL-21 [Suspect]
     Indication: CONTRACEPTION
     Route: 048
  3. CITALOPRAM HYDROBROMIDE [Suspect]
     Indication: DEPRESSION
     Route: 048
     Dates: start: 19981120, end: 19990601
  4. CIPRALEX [Suspect]
     Indication: DEPRESSION
     Route: 048
     Dates: start: 20050104, end: 20050124
  5. IMOVANE [Concomitant]
     Indication: INSOMNIA
     Route: 048
     Dates: start: 19980319

REACTIONS (6)
  - ANXIETY [None]
  - DEPRESSION [None]
  - DRUG INTOLERANCE [None]
  - HALLUCINATION [None]
  - POISONING [None]
  - SOCIAL PHOBIA [None]
